FAERS Safety Report 6669171-0 (Version None)
Quarter: 2010Q2

REPORT INFORMATION
  Report Type: 
  Country: None (occurrence: None)
  Receive Date: 20100406
  Receipt Date: 20100325
  Transmission Date: 20101027
  Serious: Yes (Other)
  Sender: FDA-Public Use
  Company Number: BR-PFIZER INC-2010028461

PATIENT
  Age: 52 Year
  Sex: Female
  Weight: 70 kg

DRUGS (2)
  1. CHAMPIX [Suspect]
     Indication: TOBACCO USER
     Dosage: 1 MG, 2X/DAY
     Route: 048
     Dates: start: 20100218, end: 20100201
  2. CHAMPIX [Suspect]
     Dosage: 2 MG, 2X/DAY
     Route: 048
     Dates: start: 20100201, end: 20100101

REACTIONS (1)
  - LIVER DISORDER [None]
